FAERS Safety Report 15965391 (Version 3)
Quarter: 2019Q3

REPORT INFORMATION
  Report Type: Spontaneous
  Country: JP (occurrence: JP)
  Receive Date: 20190215
  Receipt Date: 20190920
  Transmission Date: 20191004
  Serious: Yes (Other)
  Sender: FDA-Public Use
  Company Number: JP-UCBSA-2019005493

PATIENT
  Age: 5 Year
  Sex: Female

DRUGS (4)
  1. E KEPPRA [Suspect]
     Active Substance: LEVETIRACETAM
     Indication: EPILEPSY
     Dosage: 360MG DAILY
     Route: 048
     Dates: start: 20180905, end: 20181227
  2. MIDAZOLAM [Suspect]
     Active Substance: MIDAZOLAM HYDROCHLORIDE
     Indication: PRODUCT USED FOR UNKNOWN INDICATION
     Dosage: 4 MILLIGRAM, 2X/DAY (BID)
     Route: 042
     Dates: start: 20180904, end: 20180904
  3. E KEPPRA [Suspect]
     Active Substance: LEVETIRACETAM
     Indication: EPILEPSY
     Dosage: 180 MILLIGRAM DAILY
     Route: 041
     Dates: start: 20180904, end: 20180904
  4. FOSTOIN [Suspect]
     Active Substance: FOSPHENYTOIN SODIUM
     Indication: PRODUCT USED FOR UNKNOWN INDICATION
     Dosage: 412.5 MG, DAILY
     Route: 042
     Dates: start: 20180904, end: 20180904

REACTIONS (2)
  - Proteinuria [Not Recovered/Not Resolved]
  - Tubulointerstitial nephritis [Recovered/Resolved]

NARRATIVE: CASE EVENT DATE: 20180910
